FAERS Safety Report 8812610 (Version 1)
Quarter: 2012Q4

REPORT INFORMATION
  Report Type: 
  Country: TR (occurrence: TR)
  Receive Date: 20120927
  Receipt Date: 20120927
  Transmission Date: 20130627
  Serious: Yes (Hospitalization)
  Sender: FDA-Public Use
  Company Number: TR-PFIZER INC-2012235913

PATIENT
  Age: 13 Year
  Sex: Male

DRUGS (5)
  1. GENOTROPIN [Suspect]
     Indication: GROWTH HORMONE DEFICIENCY
     Dosage: 1.7 mg, 1x/day
     Dates: start: 20111102
  2. MAGVIT [Concomitant]
     Dosage: 3x3 daily dose
     Route: 048
  3. POTASSIUM [Concomitant]
     Dosage: 2 ampules twice daily
     Route: 048
  4. BRICANYL [Concomitant]
     Dosage: UNK
     Route: 055
  5. PULMICORT [Concomitant]
     Dosage: UNK
     Route: 055

REACTIONS (4)
  - Fall [Recovered/Resolved]
  - Gait disturbance [Recovered/Resolved]
  - Muscle spasms [Recovered/Resolved]
  - Respiratory disorder [Recovered/Resolved]
